FAERS Safety Report 8852247 (Version 1)
Quarter: 2012Q4

REPORT INFORMATION
  Report Type: 
  Country: US (occurrence: US)
  Receive Date: 20121022
  Receipt Date: 20121022
  Transmission Date: 20130627
  Serious: No
  Sender: FDA-Public Use
  Company Number: US-MYLANLABS-2012S1000100

PATIENT
  Age: 67 Year
  Sex: Female

DRUGS (2)
  1. CARVEDILOL [Suspect]
     Indication: BLOOD PRESSURE INCREASED
     Route: 048
     Dates: start: 2008
  2. LORAZEPAM [Suspect]
     Indication: ANXIETY
     Route: 048

REACTIONS (1)
  - Hypersensitivity [Not Recovered/Not Resolved]
